FAERS Safety Report 17755471 (Version 1)
Quarter: 2020Q2

REPORT INFORMATION
  Report Type: Spontaneous
  Country: US (occurrence: US)
  Receive Date: 20200507
  Receipt Date: 20200507
  Transmission Date: 20200714
  Serious: Yes (Other)
  Sender: FDA-Public Use
  Company Number: US-BAYER-2020-075849

PATIENT
  Age: 32 Year
  Sex: Female

DRUGS (1)
  1. MIRENA [Suspect]
     Active Substance: LEVONORGESTREL
     Dosage: 20 ?G PER DAY, CONTINUOUSLY
     Route: 015
     Dates: start: 20131210

REACTIONS (9)
  - Complication of device removal [None]
  - Device issue [None]
  - Device placement issue [None]
  - Vaginal haemorrhage [None]
  - Dyspareunia [None]
  - Embedded device [None]
  - Pelvic pain [None]
  - Abdominal pain lower [None]
  - Medical device pain [None]
